FAERS Safety Report 18386178 (Version 1)
Quarter: 2020Q4

REPORT INFORMATION
  Report Type: Spontaneous
  Country: BR (occurrence: BR)
  Receive Date: 20201015
  Receipt Date: 20201015
  Transmission Date: 20210114
  Serious: Yes (Other)
  Sender: FDA-Public Use
  Company Number: BR-PFIZER INC-2020396738

PATIENT
  Age: 61 Year
  Sex: Male

DRUGS (1)
  1. SUTENT [Suspect]
     Active Substance: SUNITINIB MALATE
     Dosage: 50 MG
     Dates: start: 202009

REACTIONS (8)
  - Varices oesophageal [Unknown]
  - Weight decreased [Unknown]
  - Schistosomiasis [Unknown]
  - Feeding disorder [Unknown]
  - Pain [Unknown]
  - Dehydration [Unknown]
  - Diarrhoea [Unknown]
  - Hepatic cirrhosis [Unknown]
